FAERS Safety Report 6040861-6 (Version None)
Quarter: 2009Q1

REPORT INFORMATION
  Report Type: 
  Country: None (occurrence: None)
  Receive Date: 20090116
  Receipt Date: 20080708
  Transmission Date: 20090719
  Serious: Yes (Life-Threatening)
  Sender: FDA-Public Use
  Company Number: US-BRISTOL-MYERS SQUIBB COMPANY-14226070

PATIENT
  Age: 8 Year
  Sex: Female

DRUGS (4)
  1. ABILIFY [Suspect]
     Indication: AGGRESSION
     Dosage: HALF TAB OF 5MG TABS,1ST DOSE ON 6-JUN-2008 HS AND 2ND DOSE ON 7-JUN-2008
     Route: 048
     Dates: start: 20080606
  2. ABILIFY [Suspect]
     Indication: ANGER
     Dosage: HALF TAB OF 5MG TABS,1ST DOSE ON 6-JUN-2008 HS AND 2ND DOSE ON 7-JUN-2008
     Route: 048
     Dates: start: 20080606
  3. ABILIFY [Suspect]
     Indication: IMPULSIVE BEHAVIOUR
     Dosage: HALF TAB OF 5MG TABS,1ST DOSE ON 6-JUN-2008 HS AND 2ND DOSE ON 7-JUN-2008
     Route: 048
     Dates: start: 20080606
  4. CLONIDINE [Suspect]
     Dosage: 1 DOSAGE FORM = 1TAB OF 0.1 MG,INITIAL DOSE 6MAY08-1/2TAB OF 0.1 MG AT 0300,1 TAB OF 0.1 MG QHS.
     Dates: start: 20080605

REACTIONS (1)
  - ANAPHYLACTIC REACTION [None]
